FAERS Safety Report 4868867-0 (Version None)
Quarter: 2005Q4

REPORT INFORMATION
  Report Type: 
  Country: None (occurrence: None)
  Receive Date: 20051229
  Receipt Date: 20020904
  Transmission Date: 20060501
  Serious: Yes (Hospitalization, Disabling)
  Sender: FDA-Public Use
  Company Number: US-MERCK-0209USA00432

PATIENT
  Age: 43 Year
  Sex: Female
  Weight: 68 kg

DRUGS (10)
  1. VIOXX [Suspect]
     Route: 048
     Dates: start: 20010201, end: 20010101
  2. VIOXX [Suspect]
     Route: 048
     Dates: start: 20010101, end: 20010101
  3. VIOXX [Suspect]
     Route: 048
     Dates: start: 20010101
  4. COLACE [Concomitant]
     Route: 065
  5. PAXIL [Concomitant]
     Route: 065
     Dates: start: 19960101
  6. MAXZIDE [Concomitant]
     Route: 065
  7. POTASSIUM CHLORIDE [Concomitant]
     Route: 065
  8. TRAZODONE HYDROCHLORIDE [Concomitant]
     Route: 065
  9. COUMADIN [Concomitant]
     Route: 065
  10. FLEXERIL [Concomitant]
     Route: 048

REACTIONS (37)
  - ADNEXA UTERI MASS [None]
  - ANGINA UNSTABLE [None]
  - ARTHRITIS [None]
  - BACK PAIN [None]
  - CAROTID ARTERY STENOSIS [None]
  - CEREBROVASCULAR ACCIDENT [None]
  - CHEST DISCOMFORT [None]
  - CHILLS [None]
  - CONSTIPATION [None]
  - CYSTOCELE [None]
  - DIABETES MELLITUS [None]
  - EAR PAIN [None]
  - ENTEROCELE [None]
  - FIBROMYALGIA [None]
  - GANGLION [None]
  - HAEMATOCHEZIA [None]
  - HAEMORRHAGIC OVARIAN CYST [None]
  - HEADACHE [None]
  - HEARING IMPAIRED [None]
  - HYPERLIPIDAEMIA [None]
  - HYPERTENSION [None]
  - HYPOKALAEMIA [None]
  - HYPOTENSION [None]
  - LIPOSARCOMA [None]
  - MAJOR DEPRESSION [None]
  - NECK PAIN [None]
  - OEDEMA PERIPHERAL [None]
  - OVARIAN CYST [None]
  - PARAESTHESIA [None]
  - PHLEBITIS SUPERFICIAL [None]
  - RECTOCELE [None]
  - RENAL CYST [None]
  - SINUS HEADACHE [None]
  - SLEEP DISORDER [None]
  - STRESS INCONTINENCE [None]
  - THROMBOPHLEBITIS SUPERFICIAL [None]
  - UTERINE PROLAPSE [None]
